FAERS Safety Report 8347027-5 (Version None)
Quarter: 2012Q2

REPORT INFORMATION
  Report Type: 
  Country: None (occurrence: None)
  Receive Date: 20120509
  Receipt Date: 20120430
  Transmission Date: 20120825
  Serious: Yes (Hospitalization, Other)
  Sender: FDA-Public Use
  Company Number: PHHY2012DE036861

PATIENT
  Sex: Male
  Weight: 66 kg

DRUGS (8)
  1. RASILEZ HCT [Suspect]
     Indication: HYPERTENSION
     Dosage: 1 DF/DAY
     Route: 048
     Dates: end: 20120405
  2. DIURETICS [Concomitant]
     Dates: start: 20120405
  3. TAMSULOSIN HCL [Concomitant]
     Dosage: 1 DF/DAY
     Route: 048
     Dates: start: 20080909
  4. ACE INHIBITOR NOS [Concomitant]
     Dates: start: 20120405
  5. ALPHA RECEPTOR BLOCKER [Concomitant]
     Dates: start: 20101125, end: 20120405
  6. CHOLESTEROL- AND TRIGLYCERIDE REDUCERS [Concomitant]
  7. ANTIDEPRESSANTS [Concomitant]
  8. BETA BLOCKING AGENTS [Concomitant]
     Dates: start: 20120405

REACTIONS (6)
  - DEPRESSION [None]
  - VENOUS INSUFFICIENCY [None]
  - INFECTION [None]
  - INJURY [None]
  - ULCER [None]
  - CARDIOVASCULAR DISORDER [None]
